FAERS Safety Report 4774747-1 (Version None)
Quarter: 2005Q3

REPORT INFORMATION
  Report Type: 
  Country: None (occurrence: None)
  Receive Date: 20050921
  Receipt Date: 20050912
  Transmission Date: 20060218
  Serious: Yes (Other)
  Sender: FDA-Public Use
  Company Number: GB-GLAXOSMITHKLINE-B0393664A

PATIENT
  Age: 50 Year
  Sex: Female

DRUGS (3)
  1. ZYBAN [Suspect]
     Indication: EX-SMOKER
     Dosage: 150MG PER DAY
     Route: 048
     Dates: start: 20050813, end: 20050815
  2. ATENOLOL [Concomitant]
     Indication: HYPERTENSION
     Dosage: 50MG PER DAY
     Route: 048
     Dates: start: 19990101
  3. METRONIDAZOLE [Concomitant]
     Indication: ROSACEA
     Route: 061
     Dates: start: 20050630

REACTIONS (2)
  - AGITATION [None]
  - PREMENSTRUAL SYNDROME [None]
